FAERS Safety Report 17230912 (Version 3)
Quarter: 2020Q1

REPORT INFORMATION
  Report Type: Report from Study
  Country: DE (occurrence: DE)
  Receive Date: 20200103
  Receipt Date: 20200217
  Transmission Date: 20200409
  Serious: Yes (Congenital Anomaly)
  Sender: FDA-Public Use
  Company Number: DE-ASTRAZENECA-2019SF92393

PATIENT
  Sex: Female

DRUGS (32)
  1. RANITIDINE. [Suspect]
     Active Substance: RANITIDINE
     Route: 064
  2. SUXAMETHONIUM [Suspect]
     Active Substance: SUCCINYLCHOLINE
     Route: 064
  3. CEFUROXIME. [Suspect]
     Active Substance: CEFUROXIME
     Route: 064
  4. DIHYDRALAZINE [Suspect]
     Active Substance: DIHYDRALAZINE
     Route: 064
  5. ENOXAPARIN [Suspect]
     Active Substance: ENOXAPARIN
     Route: 064
  6. GLYCERYL TRINITRATE [Suspect]
     Active Substance: NITROGLYCERIN
     Route: 064
  7. METOCLOPRAMIDE. [Suspect]
     Active Substance: METOCLOPRAMIDE
     Route: 064
  8. REMIFENTANIL [Suspect]
     Active Substance: REMIFENTANIL
     Route: 064
  9. ESOMEPRAZOLE. [Suspect]
     Active Substance: ESOMEPRAZOLE MAGNESIUM
     Route: 064
  10. PROPOFOL. [Suspect]
     Active Substance: PROPOFOL
     Route: 064
  11. PARACETAMOL [Suspect]
     Active Substance: ACETAMINOPHEN
     Indication: PAIN
     Route: 064
  12. URAPIDIL [Suspect]
     Active Substance: URAPIDIL
     Route: 064
  13. METOPROLOL. [Suspect]
     Active Substance: METOPROLOL
     Route: 064
  14. CEFOTAXIME [Suspect]
     Active Substance: CEFOTAXIME SODIUM
     Route: 064
  15. HEPARIN [Suspect]
     Active Substance: HEPARIN SODIUM
     Route: 064
  16. METAMIZOL [Suspect]
     Active Substance: METAMIZOLE SODIUM
     Route: 064
  17. METHYLDOPA. [Suspect]
     Active Substance: METHYLDOPA
     Route: 064
  18. CEFTAZIDIME. [Suspect]
     Active Substance: CEFTAZIDIME
     Route: 064
  19. DESMOPRESSIN [Suspect]
     Active Substance: DESMOPRESSIN
     Route: 064
  20. MIDAZOLAM HYDROCHLORIDE. [Suspect]
     Active Substance: MIDAZOLAM HYDROCHLORIDE
     Route: 064
  21. PIRITRAMIDE [Suspect]
     Active Substance: PIRITRAMIDE
     Route: 064
  22. ATRACURIUM [Suspect]
     Active Substance: ATRACURIUM
     Route: 064
  23. BETAMETHASONE. [Suspect]
     Active Substance: BETAMETHASONE
     Route: 064
  24. CLONIDINE. [Suspect]
     Active Substance: CLONIDINE
     Route: 064
  25. IOHEXOL [Suspect]
     Active Substance: IOHEXOL
     Route: 064
  26. LORAZEPAM. [Suspect]
     Active Substance: LORAZEPAM
     Route: 064
  27. NIMODIPINE. [Suspect]
     Active Substance: NIMODIPINE
     Route: 064
  28. NOREPINEPHRINE. [Suspect]
     Active Substance: NOREPINEPHRINE
     Route: 064
  29. NIFEDIPINE. [Suspect]
     Active Substance: NIFEDIPINE
     Route: 064
  30. SIMVASTATIN. [Suspect]
     Active Substance: SIMVASTATIN
     Route: 064
  31. SUFENTANIL [Suspect]
     Active Substance: SUFENTANIL
     Route: 064
  32. COTRIMOXACOL [Suspect]
     Active Substance: SULFAMETHOXAZOLE\TRIMETHOPRIM
     Route: 064

REACTIONS (2)
  - Premature baby [Unknown]
  - Patent ductus arteriosus [Unknown]
